FAERS Safety Report 6834692-4 (Version None)
Quarter: 2010Q3

REPORT INFORMATION
  Report Type: 
  Country: None (occurrence: None)
  Receive Date: 20100712
  Receipt Date: 20070417
  Transmission Date: 20110219
  Serious: No
  Sender: FDA-Public Use
  Company Number: US-PFIZER INC-2007031142

PATIENT
  Sex: Female
  Weight: 51.363 kg

DRUGS (5)
  1. CHANTIX [Suspect]
     Indication: SMOKING CESSATION THERAPY
     Dates: start: 20070401
  2. PROCRIT [Concomitant]
     Indication: BLOOD DISORDER
  3. ANALGESICS [Concomitant]
     Indication: PAIN
  4. OTHER NERVOUS SYSTEM DRUGS [Concomitant]
     Indication: NEUROPATHY PERIPHERAL
  5. DRUGS FOR TREATMENT OF BONE DISEASES [Concomitant]
     Indication: OSTEOPOROSIS

REACTIONS (2)
  - ABNORMAL DREAMS [None]
  - SOMNOLENCE [None]
